FAERS Safety Report 16622034 (Version 3)
Quarter: 2020Q3

REPORT INFORMATION
  Report Type: Spontaneous
  Country: US (occurrence: US)
  Receive Date: 20190723
  Receipt Date: 20200728
  Transmission Date: 20201102
  Serious: No
  Sender: FDA-Public Use
  Company Number: US-TEVA-2019-US-1081628

PATIENT
  Sex: Female
  Weight: 79 kg

DRUGS (4)
  1. TRAZODONE [Concomitant]
     Active Substance: TRAZODONE HYDROCHLORIDE
  2. TRAMADOL. [Concomitant]
     Active Substance: TRAMADOL
  3. AJOVY [Suspect]
     Active Substance: FREMANEZUMAB-VFRM
     Indication: MIGRAINE
     Route: 065
     Dates: end: 20200625
  4. ZOMIG [Concomitant]
     Active Substance: ZOLMITRIPTAN

REACTIONS (6)
  - Erythema [Recovered/Resolved]
  - Injection site induration [Unknown]
  - Injection site pain [Unknown]
  - Pigmentation disorder [Recovered/Resolved]
  - Pruritus [Recovered/Resolved]
  - Urticaria [Recovered/Resolved]
